FAERS Safety Report 8766429 (Version 1)
Quarter: 2012Q4

REPORT INFORMATION
  Report Type: 
  Country: US (occurrence: US)
  Receive Date: 20120904
  Receipt Date: 20120904
  Transmission Date: 20130627
  Serious: Yes (Other)
  Sender: FDA-Public Use
  Company Number: US-AMGEN-USACT2012055039

PATIENT

DRUGS (12)
  1. FILGRASTIM [Suspect]
     Indication: OSTEOSARCOMA METASTATIC
     Dosage: UNK
  2. TRASTUZUMAB [Suspect]
     Indication: OSTEOSARCOMA METASTATIC
     Dosage: 2 mg/kg, qwk
  3. TRASTUZUMAB [Suspect]
     Dosage: 4 mg/kg, one time dose
  4. DOXORUBICIN [Suspect]
     Indication: OSTEOSARCOMA METASTATIC
     Dosage: 37.5 mg/m2, qd
     Route: 042
  5. CISPLATIN [Suspect]
     Indication: OSTEOSARCOMA METASTATIC
     Dosage: 60 mg/m2, qd
  6. METHOTREXATE [Suspect]
     Indication: OSTEOSARCOMA METASTATIC
     Dosage: 12 g/m2, qd
  7. LEUCOVORIN                         /00566702/ [Suspect]
     Indication: OSTEOSARCOMA METASTATIC
     Dosage: 15 mg, q6h
  8. IFOSFAMIDE [Suspect]
     Indication: OSTEOSARCOMA METASTATIC
     Dosage: 2.8 g/m2, qd
  9. IFOSFAMIDE [Suspect]
     Dosage: 1.8 g/m2, qd
  10. ETOPOSIDE [Suspect]
     Indication: OSTEOSARCOMA METASTATIC
     Dosage: 100 mg/m2, qd
  11. MESNA [Concomitant]
     Indication: OSTEOSARCOMA METASTATIC
     Dosage: UNK
  12. DEXRAZOXANE [Concomitant]
     Dosage: 375 mg/m2, qd

REACTIONS (2)
  - Neutropenia [Unknown]
  - Myeloid leukaemia [Unknown]
